FAERS Safety Report 6813834-0 (Version None)
Quarter: 2010Q3

REPORT INFORMATION
  Report Type: 
  Country: None (occurrence: None)
  Receive Date: 20100702
  Receipt Date: 20100621
  Transmission Date: 20110219
  Serious: Yes (Hospitalization)
  Sender: FDA-Public Use
  Company Number: US-BIOGENIDEC-2010BI021191

PATIENT
  Sex: Male
  Weight: 72 kg

DRUGS (2)
  1. AVONEX [Suspect]
     Indication: MULTIPLE SCLEROSIS
     Route: 030
  2. AVONEX [Suspect]
     Route: 030
     Dates: start: 20100101

REACTIONS (3)
  - MULTIPLE SCLEROSIS RELAPSE [None]
  - OSTEONECROSIS [None]
  - PSYCHOSOMATIC DISEASE [None]
